FAERS Safety Report 12491692 (Version 1)
Quarter: 2016Q2

REPORT INFORMATION
  Report Type: Spontaneous
  Country: US (occurrence: None)
  Receive Date: 20160622
  Receipt Date: 20160622
  Transmission Date: 20160815
  Serious: Yes (Other)
  Sender: FDA-Public Use
  Company Number: None

PATIENT
  Age: 52 Year
  Sex: Female
  Weight: 75.8 kg

DRUGS (6)
  1. FERRIC CARBOXYMALTOSE [Suspect]
     Active Substance: FERRIC CARBOXYMALTOSE
     Indication: IRON DEFICIENCY ANAEMIA
     Route: 040
     Dates: start: 20160315, end: 20160323
  2. DESSICATED THYROID [Concomitant]
  3. ALPRAZOLAM. [Concomitant]
     Active Substance: ALPRAZOLAM
  4. FISH OIL [Concomitant]
     Active Substance: FISH OIL
  5. IBUPROFEN. [Concomitant]
     Active Substance: IBUPROFEN
  6. SUMATRIPTAN. [Concomitant]
     Active Substance: SUMATRIPTAN

REACTIONS (1)
  - Blood phosphorus decreased [None]

NARRATIVE: CASE EVENT DATE: 20160323
